FAERS Safety Report 22037791 (Version 1)
Quarter: 2023Q1

REPORT INFORMATION
  Report Type: Report from Study
  Country: EG (occurrence: EG)
  Receive Date: 20230227
  Receipt Date: 20230227
  Transmission Date: 20230417
  Serious: Yes (Hospitalization)
  Sender: FDA-Public Use
  Company Number: EG-002147023-NVSC2023EG038869

PATIENT
  Age: 32 Year
  Sex: Female

DRUGS (3)
  1. HYRIMOZ [Suspect]
     Active Substance: ADALIMUMAB-ADAZ
     Indication: Ocular sarcoidosis
     Dosage: 40 MG, Q2W (EVERY 15 DAYS)
     Route: 065
     Dates: start: 20220315, end: 202210
  2. SOLUPRED [Concomitant]
     Indication: Ocular sarcoidosis
     Dosage: 1 DOSAGE FORM, QD (START DATE: 5 YEARS AGO)
     Route: 065
  3. INSULIN NOS [Concomitant]
     Active Substance: INSULIN NOS
     Indication: Diabetes mellitus
     Dosage: 3 DOSAGE FORM, QD (START DATE: YEARS AGO) ( ACCORDING TO GLUCOSE LEVEL 10 OR 20 IU AND ANOTHER TYPE
     Route: 065

REACTIONS (6)
  - Pyrexia [Recovered/Resolved]
  - Cough [Recovered/Resolved]
  - Nasopharyngitis [Recovered/Resolved]
  - Blood glucose increased [Recovered/Resolved]
  - Inflammation [Recovered/Resolved]
  - Dyspnoea [Recovered/Resolved]

NARRATIVE: CASE EVENT DATE: 20221201
